FAERS Safety Report 4314833-3 (Version None)
Quarter: 2004Q1

REPORT INFORMATION
  Report Type: 
  Country: None (occurrence: None)
  Receive Date: 20040310
  Receipt Date: 20031212
  Transmission Date: 20041129
  Serious: Yes (Other)
  Sender: FDA-Public Use
  Company Number: FR-BRISTOL-MYERS SQUIBB COMPANY-12457388

PATIENT
  Age: 55 Year
  Sex: Male
  Weight: 70 kg

DRUGS (1)
  1. TAXOL [Suspect]
     Indication: BRONCHIAL CARCINOMA
     Dosage: THERAPY DATES: 03 DEC TO 10-DEC-2003
     Route: 042
     Dates: start: 20031210, end: 20031210

REACTIONS (5)
  - BACK PAIN [None]
  - CHEST PAIN [None]
  - HYPERTENSION [None]
  - INFUSION RELATED REACTION [None]
  - LOSS OF CONSCIOUSNESS [None]
